FAERS Safety Report 8682364 (Version 9)
Quarter: 2013Q4

REPORT INFORMATION
  Report Type: Spontaneous
  Country: US (occurrence: US)
  Receive Date: 20120725
  Receipt Date: 20131106
  Transmission Date: 20140711
  Serious: Yes (Hospitalization, Other)
  Sender: FDA-Public Use
  Company Number: US-009507513-1204USA02199

PATIENT
  Sex: Female
  Weight: 108.39 kg

DRUGS (7)
  1. FOSAMAX [Suspect]
     Indication: OSTEOPOROSIS
     Dosage: UNK
     Route: 048
     Dates: start: 2006, end: 20110712
  2. FOSAMAX [Suspect]
     Indication: OSTEOPOROSIS
     Dosage: 70 MG, QW
     Route: 048
     Dates: start: 20080502, end: 20110712
  3. HORMONES (UNSPECIFIED) [Concomitant]
     Indication: OSTEOPOROSIS
     Dosage: UNK
     Dates: start: 200201, end: 201201
  4. MORPHINE SULFATE [Concomitant]
     Indication: PAIN
  5. PERCOCET [Concomitant]
     Indication: PAIN
  6. SOMA [Concomitant]
     Indication: PAIN
  7. XANAX [Concomitant]
     Indication: PAIN

REACTIONS (99)
  - Femur fracture [Unknown]
  - Transfusion [Unknown]
  - Gastroplasty [Unknown]
  - Joint surgery [Unknown]
  - Spinal laminectomy [Unknown]
  - Knee operation [Unknown]
  - Ligament operation [Not Recovered/Not Resolved]
  - Open reduction of fracture [Unknown]
  - Knee arthroplasty [Unknown]
  - Open reduction of fracture [Unknown]
  - Open reduction of fracture [Unknown]
  - Fibula fracture [Unknown]
  - Open reduction of fracture [Unknown]
  - Ankle fracture [Not Recovered/Not Resolved]
  - Osteonecrosis of jaw [Unknown]
  - Osteoarthritis [Unknown]
  - Gout [Unknown]
  - Ankle fracture [Unknown]
  - Heart rate irregular [Unknown]
  - Mitral valve prolapse [Unknown]
  - Sinus disorder [Unknown]
  - Thyroid disorder [Unknown]
  - Renal cyst [Unknown]
  - Hysterectomy [Unknown]
  - Endodontic procedure [Unknown]
  - Tooth disorder [Unknown]
  - Tooth disorder [Unknown]
  - Tooth fracture [Unknown]
  - Abscess [Unknown]
  - Night sweats [Unknown]
  - Vision blurred [Unknown]
  - Eye discharge [Unknown]
  - Generalised anxiety disorder [Unknown]
  - Sleep disorder [Unknown]
  - Hyperthyroidism [Unknown]
  - Ligament pain [Unknown]
  - Joint effusion [Unknown]
  - Migraine [Unknown]
  - Arthroscopy [Unknown]
  - Nasal congestion [Unknown]
  - Rhinorrhoea [Unknown]
  - Palpitations [Unknown]
  - Dyspnoea [Unknown]
  - Melanocytic naevus [Unknown]
  - Stress [Unknown]
  - Chills [Unknown]
  - Chest pain [Unknown]
  - Cough [Unknown]
  - Vaginal discharge [Unknown]
  - Vulvovaginal pruritus [Unknown]
  - Breast mass [Unknown]
  - Increased tendency to bruise [Unknown]
  - Lymphadenopathy [Unknown]
  - Hyperhidrosis [Unknown]
  - Upper respiratory tract infection [Unknown]
  - Depression [Unknown]
  - Mood swings [Unknown]
  - Acute sinusitis [Unknown]
  - Haemorrhage [Unknown]
  - Foot fracture [Unknown]
  - Disturbance in attention [Unknown]
  - Suicidal ideation [Unknown]
  - Victim of abuse [Unknown]
  - Tendon disorder [Unknown]
  - Meralgia paraesthetica [Unknown]
  - Impaired healing [Unknown]
  - Arthropathy [Unknown]
  - Ecchymosis [Unknown]
  - Oral infection [Unknown]
  - Dental caries [Unknown]
  - Sciatica [Not Recovered/Not Resolved]
  - Cervicobrachial syndrome [Not Recovered/Not Resolved]
  - Intervertebral disc protrusion [Unknown]
  - Lumbar radiculopathy [Unknown]
  - Cardiac murmur [Unknown]
  - Lower limb fracture [Unknown]
  - Osteopenia [Unknown]
  - Nerve compression [Unknown]
  - Fall [Unknown]
  - Patellofemoral pain syndrome [Unknown]
  - Fall [Unknown]
  - Joint dislocation [Unknown]
  - Pain in extremity [Unknown]
  - Musculoskeletal pain [Unknown]
  - Asthenia [Unknown]
  - Pyrexia [Unknown]
  - Pyrexia [Unknown]
  - Headache [Unknown]
  - Gastrooesophageal reflux disease [Unknown]
  - Drug hypersensitivity [Unknown]
  - Oedema peripheral [Unknown]
  - Nausea [Unknown]
  - Vomiting [Unknown]
  - Back pain [Not Recovered/Not Resolved]
  - Pain in extremity [Unknown]
  - Myalgia [Unknown]
  - Dizziness [Unknown]
  - Rash [Unknown]
  - Neck pain [Not Recovered/Not Resolved]
